FAERS Safety Report 26149084 (Version 2)
Quarter: 2025Q4

REPORT INFORMATION
  Report Type: Report from Study
  Country: US (occurrence: US)
  Receive Date: 20251212
  Receipt Date: 20251229
  Transmission Date: 20260118
  Serious: Yes (Other)
  Sender: CSL BEHRING
  Company Number: US-BEH-2025222149

PATIENT
  Age: 49 Year
  Sex: Male
  Weight: 81.633 kg

DRUGS (6)
  1. GARADACIMAB [Suspect]
     Active Substance: GARADACIMAB
     Indication: Prophylaxis
     Dosage: UNK
     Route: 065
  2. GARADACIMAB [Suspect]
     Active Substance: GARADACIMAB
     Dosage: 400 MG, INITIAL LOADING DOSE
     Route: 065
     Dates: start: 20250905
  3. GARADACIMAB [Suspect]
     Active Substance: GARADACIMAB
     Dosage: 200 MG
     Route: 065
     Dates: start: 20251104
  4. GARADACIMAB [Suspect]
     Active Substance: GARADACIMAB
     Dosage: 200 MG, QMT
     Route: 058
     Dates: start: 20250905, end: 20251114
  5. SAJAZIR [Concomitant]
     Active Substance: ICATIBANT ACETATE
  6. ICATIBANT [Concomitant]
     Active Substance: ICATIBANT ACETATE

REACTIONS (5)
  - Hereditary angioedema [Unknown]
  - Hereditary angioedema [Recovering/Resolving]
  - Hereditary angioedema [Recovered/Resolved]
  - Gastrointestinal pain [Unknown]
  - Therapy cessation [Unknown]

NARRATIVE: CASE EVENT DATE: 20250908
